FAERS Safety Report 7739444-9 (Version None)
Quarter: 2011Q3

REPORT INFORMATION
  Report Type: 
  Country: None (occurrence: None)
  Receive Date: 20110909
  Receipt Date: 20110907
  Transmission Date: 20111222
  Serious: Yes (Other)
  Sender: FDA-Public Use
  Company Number: US-PFIZER INC-2011087042

PATIENT
  Sex: Female

DRUGS (5)
  1. ALBUTEROL SULFATE AUTOHALER [Concomitant]
     Indication: BRONCHITIS
     Dosage: UNK
     Dates: start: 20030101, end: 20100101
  2. CHANTIX [Suspect]
     Indication: SMOKING CESSATION THERAPY
     Dosage: UNK
     Dates: start: 20070701, end: 20070901
  3. ALLEGRA [Concomitant]
     Indication: HYPERSENSITIVITY
  4. ALLEGRA [Concomitant]
     Indication: SINUSITIS
     Dosage: UNK
     Dates: start: 20060101, end: 20090101
  5. AZITHROMYCIN [Concomitant]
     Indication: BRONCHITIS
     Dosage: UNK
     Dates: start: 20030101, end: 20100101

REACTIONS (4)
  - DEPRESSION [None]
  - AGITATION [None]
  - ANXIETY [None]
  - INSOMNIA [None]
